FAERS Safety Report 7376738-3 (Version None)
Quarter: 2011Q1

REPORT INFORMATION
  Report Type: 
  Country: None (occurrence: None)
  Receive Date: 20110325
  Receipt Date: 20110321
  Transmission Date: 20110831
  Serious: Yes (Life-Threatening, Hospitalization)
  Sender: FDA-Public Use
  Company Number: US-ASTRAZENECA-2011SE15874

PATIENT
  Age: 29289 Day
  Sex: Male

DRUGS (4)
  1. SEROQUEL [Suspect]
     Route: 048
     Dates: end: 20110301
  2. MULTAQ [Suspect]
     Indication: ATRIAL FIBRILLATION
     Route: 048
     Dates: start: 20101101, end: 20110301
  3. WARFARIN [Concomitant]
  4. ASPIRIN [Concomitant]

REACTIONS (4)
  - VENTRICULAR FIBRILLATION [None]
  - HYPERTENSION [None]
  - HAEMATURIA [None]
  - ELECTROCARDIOGRAM QT PROLONGED [None]
